FAERS Safety Report 6558407-2 (Version None)
Quarter: 2010Q1

REPORT INFORMATION
  Report Type: 
  Country: None (occurrence: None)
  Receive Date: 20100129
  Receipt Date: 20100120
  Transmission Date: 20100710
  Serious: Yes (Other)
  Sender: FDA-Public Use
  Company Number: DE-JNJFOC-20100108062

PATIENT
  Age: 4 Year
  Sex: Male

DRUGS (2)
  1. DOLORMIN FUR KINDER 2% [Suspect]
     Route: 048
  2. DOLORMIN FUR KINDER 2% [Suspect]
     Indication: DRUG USE FOR UNKNOWN INDICATION
     Route: 048

REACTIONS (8)
  - ABDOMINAL PAIN [None]
  - BLOOD URINE PRESENT [None]
  - EYELID OEDEMA [None]
  - HAEMATOCHEZIA [None]
  - HENOCH-SCHONLEIN PURPURA [None]
  - JOINT SWELLING [None]
  - RASH [None]
  - TESTICULAR SWELLING [None]
